FAERS Safety Report 4581646-7 (Version None)
Quarter: 2005Q1

REPORT INFORMATION
  Report Type: 
  Country: None (occurrence: None)
  Receive Date: 20050214
  Receipt Date: 20041208
  Transmission Date: 20050727
  Serious: No
  Sender: FDA-Public Use
  Company Number: US-GLAXOSMITHKLINE-A0536642A

PATIENT
  Age: 21 Year
  Sex: Male

DRUGS (5)
  1. LAMICTAL [Suspect]
     Indication: BIPOLAR DISORDER
     Dosage: 150MG TWICE PER DAY
     Route: 048
  2. RISPERDAL [Concomitant]
  3. WELLBUTRIN [Concomitant]
  4. SYNTHROID [Concomitant]
  5. BUSPAR [Concomitant]

REACTIONS (1)
  - VISION BLURRED [None]
